FAERS Safety Report 6395065-4 (Version None)
Quarter: 2009Q4

REPORT INFORMATION
  Report Type: 
  Country: None (occurrence: None)
  Receive Date: 20091009
  Receipt Date: 20090929
  Transmission Date: 20100525
  Serious: Yes (Other)
  Sender: FDA-Public Use
  Company Number: US-PFIZER INC-2009243323

PATIENT
  Weight: 120 kg

DRUGS (7)
  1. CELEBREX [Suspect]
     Indication: CONTUSION
     Dosage: 200 MG, 2X/DAY
     Dates: start: 20090610, end: 20090713
  2. IBUPROFEN [Suspect]
  3. GLYBURIDE [Concomitant]
     Dosage: UNK
  4. ACTOS [Concomitant]
     Dosage: UNK
  5. LIPITOR [Concomitant]
     Dosage: UNK
  6. ACETYLSALICYLIC ACID [Concomitant]
     Dosage: UNK
  7. NYQUIL [Concomitant]
     Dosage: UNK

REACTIONS (4)
  - BLOOD URINE PRESENT [None]
  - GASTROINTESTINAL DISORDER [None]
  - HAEMATOCHEZIA [None]
  - URINARY RETENTION [None]
